FAERS Safety Report 7003347-8 (Version None)
Quarter: 2010Q3

REPORT INFORMATION
  Report Type: 
  Country: None (occurrence: None)
  Receive Date: 20100916
  Receipt Date: 20100907
  Transmission Date: 20110219
  Serious: Yes (Death, Hospitalization, Other)
  Sender: FDA-Public Use
  Company Number: KV200900720

PATIENT
  Age: 46 Year
  Sex: Female
  Weight: 117.7 kg

DRUGS (20)
  1. PROPAFENONE HYDROCHLORIDE [Suspect]
     Indication: ATRIAL FIBRILLATION
     Dosage: 150 MG, BID, ORAL
     Route: 048
     Dates: start: 20070914, end: 20080825
  2. PROPAFENONE HCL [Suspect]
     Indication: ATRIAL FIBRILLATION
     Dosage: 225 MG, TID, ORAL; 150 MG, TID, ORAL
     Route: 048
     Dates: end: 20070914
  3. PROPAFENONE HCL [Suspect]
     Indication: ATRIAL FIBRILLATION
     Dosage: 225 MG, TID, ORAL; 150 MG, TID, ORAL
     Route: 048
     Dates: start: 20080825, end: 20080911
  4. PROPAFENONE HCL [Suspect]
     Indication: ATRIAL FIBRILLATION
     Dosage: 225 MG, TID, ORAL; 150 MG, TID, ORAL
     Route: 048
     Dates: start: 20080911, end: 20081019
  5. ATENOLOL [Concomitant]
  6. COUMADIN [Concomitant]
  7. DIURETICS [Concomitant]
  8. ESOMEPRAZOLE MAGNESIUM [Concomitant]
  9. FOSPHENYTOIN (FOSPHENYTOIN) [Concomitant]
  10. INSULIN (INSULIN) [Concomitant]
  11. LORAZEPAM [Concomitant]
  12. MEROPENEM [Concomitant]
  13. POTASSIUM CHLORIDE [Concomitant]
  14. DEXTROSE [Concomitant]
  15. GLUCAGON [Concomitant]
  16. LABETALOL HCL [Concomitant]
  17. HEPARIN [Concomitant]
  18. PROPOFOL [Concomitant]
  19. SODIUM CHLORIDE 0.9% [Concomitant]
  20. ASPIRIN [Concomitant]

REACTIONS (25)
  - APNOEA [None]
  - ASTHENIA [None]
  - ATRIAL FIBRILLATION [None]
  - BRAIN DEATH [None]
  - CARDIAC ARREST [None]
  - CHEST PAIN [None]
  - COMA [None]
  - CONVULSION [None]
  - DIZZINESS [None]
  - DRUG INEFFECTIVE [None]
  - ELECTROCARDIOGRAM QT PROLONGED [None]
  - FATIGUE [None]
  - HAEMATEMESIS [None]
  - HYPOXIC-ISCHAEMIC ENCEPHALOPATHY [None]
  - INCONTINENCE [None]
  - INCORRECT DOSE ADMINISTERED [None]
  - LOSS OF CONSCIOUSNESS [None]
  - NAUSEA [None]
  - OEDEMA PERIPHERAL [None]
  - PAIN [None]
  - POLYURIA [None]
  - RESPIRATORY FAILURE [None]
  - SINUS TACHYCARDIA [None]
  - SUDDEN CARDIAC DEATH [None]
  - VENTRICULAR FIBRILLATION [None]
